FAERS Safety Report 11618105 (Version 1)
Quarter: 2015Q4

REPORT INFORMATION
  Report Type: Spontaneous
  Country: SE (occurrence: SE)
  Receive Date: 20151010
  Receipt Date: 20151010
  Transmission Date: 20160304
  Serious: Yes (Other)
  Sender: FDA-Public Use
  Company Number: SE-JNJFOC-20150926810

PATIENT
  Sex: Female

DRUGS (4)
  1. IPREN 400 MG CAPSULE SOFT [Suspect]
     Active Substance: IBUPROFEN
     Indication: HEADACHE
     Route: 065
     Dates: start: 20150918, end: 20150918
  2. IPREN 400 MG CAPSULE SOFT [Suspect]
     Active Substance: IBUPROFEN
     Indication: PRODUCT USED FOR UNKNOWN INDICATION
     Dosage: SOFT CAPSULE
     Route: 065
     Dates: start: 20150914, end: 20150914
  3. IPREN 400 MG CAPSULE SOFT [Suspect]
     Active Substance: IBUPROFEN
     Indication: PRODUCT USED FOR UNKNOWN INDICATION
     Route: 065
     Dates: start: 20150918, end: 20150918
  4. IPREN 400 MG CAPSULE SOFT [Suspect]
     Active Substance: IBUPROFEN
     Indication: HEADACHE
     Dosage: SOFT CAPSULE
     Route: 065
     Dates: start: 20150914, end: 20150914

REACTIONS (5)
  - Dyspnoea [Recovered/Resolved]
  - Nausea [Recovered/Resolved]
  - Palpitations [Recovered/Resolved]
  - Fatigue [Recovered/Resolved]
  - Anxiety [Recovered/Resolved]

NARRATIVE: CASE EVENT DATE: 20150914
